FAERS Safety Report 4963617-1 (Version None)
Quarter: 2006Q1

REPORT INFORMATION
  Report Type: 
  Country: None (occurrence: None)
  Receive Date: 20060201
  Receipt Date: 20051121
  Transmission Date: 20060701
  Serious: No
  Sender: FDA-Public Use
  Company Number: 2005PV004671

PATIENT
  Age: 62 Year
  Sex: Female
  Weight: 118.3888 kg

DRUGS (2)
  1. BYETTA [Suspect]
     Dosage: 5 MCG;BID;SC
     Route: 058
     Dates: start: 20051111
  2. DIABETA [Concomitant]

REACTIONS (3)
  - BLOOD GLUCOSE DECREASED [None]
  - DRY MOUTH [None]
  - NERVOUSNESS [None]
